FAERS Safety Report 25953054 (Version 1)
Quarter: 2025Q4

REPORT INFORMATION
  Report Type: Spontaneous
  Country: US (occurrence: US)
  Receive Date: 20251023
  Receipt Date: 20251023
  Transmission Date: 20260117
  Serious: Yes (Hospitalization)
  Sender: FRESENIUS MEDICAL CARE
  Company Number: US-FMCRTG-FMC-2509-001472

PATIENT
  Age: 75 Year
  Sex: Female
  Weight: 70 kg

DRUGS (3)
  1. DELFLEX WITH DEXTROSE 1.5% LOW MAGNESIUM LOW CALCIUM [Suspect]
     Active Substance: CALCIUM CHLORIDE\DEXTROSE\MAGNESIUM CHLORIDE\SODIUM CHLORIDE\SODIUM LACTATE
     Indication: End stage renal disease
     Dosage: EXCHANGES 5, FILL VOLUME 2000 ML, AVERAGE DWELL TIME 1.35 HOURS, LAST FILL 500 ML, DAYTIME DWELL N/A
     Route: 033
  2. DELFLEX WITH DEXTROSE 2.5% LOW MAGNESIUM LOW CALCIUM [Suspect]
     Active Substance: CALCIUM CHLORIDE\DEXTROSE\MAGNESIUM CHLORIDE\SODIUM CHLORIDE\SODIUM LACTATE
     Indication: End stage renal disease
     Dosage: EXCHANGES 5, FILL VOLUME 2000 ML, AVERAGE DWELL TIME 1.35 HOURS, LAST FILL 500 ML, DAYTIME DWELL N/A
     Route: 033
  3. DELFLEX WITH DEXTROSE 4.25% LOW MAGNESIUM LOW CALCIUM [Suspect]
     Active Substance: CALCIUM CHLORIDE\DEXTROSE\MAGNESIUM CHLORIDE\SODIUM CHLORIDE\SODIUM LACTATE
     Indication: End stage renal disease
     Dosage: EXCHANGES 5, FILL VOLUME 2000 ML, AVERAGE DWELL TIME 1.35 HOURS, LAST FILL 500 ML, DAYTIME DWELL N/A
     Route: 033

REACTIONS (1)
  - Peritonitis bacterial [Recovered/Resolved]
